FAERS Safety Report 6332520-7 (Version None)
Quarter: 2009Q3

REPORT INFORMATION
  Report Type: 
  Country: None (occurrence: None)
  Receive Date: 20090828
  Receipt Date: 20090817
  Transmission Date: 20100115
  Serious: Yes (Hospitalization)
  Sender: FDA-Public Use
  Company Number: FR-AMGEN-UK361505

PATIENT
  Sex: Male

DRUGS (7)
  1. ARANESP [Suspect]
     Indication: DRUG USE FOR UNKNOWN INDICATION
     Route: 058
     Dates: start: 20090201, end: 20090618
  2. REVLIMID [Suspect]
     Route: 048
     Dates: start: 20090315, end: 20090525
  3. DEXAMETHASONE [Concomitant]
     Route: 065
  4. GLUCOPHAGE [Concomitant]
     Route: 065
  5. GLIMEPIRIDE [Concomitant]
     Route: 065
  6. CRESTOR [Concomitant]
     Route: 065
  7. HYZAAR [Concomitant]
     Route: 065

REACTIONS (2)
  - ANAEMIA [None]
  - APLASIA PURE RED CELL [None]
